FAERS Safety Report 23888643 (Version 1)
Quarter: 2024Q2

REPORT INFORMATION
  Report Type: Spontaneous
  Country: US (occurrence: None)
  Receive Date: 20240522
  Receipt Date: 20240522
  Transmission Date: 20240716
  Serious: Yes (Disabling)
  Sender: FDA-Public Use
  Company Number: None

PATIENT
  Age: 41 Year
  Sex: Female
  Weight: 76.5 kg

DRUGS (6)
  1. DOTAREM [Suspect]
     Active Substance: GADOTERATE MEGLUMINE
     Indication: X-ray with contrast
     Dosage: 16 CC DURING  MRI INTRAVENOUS
     Route: 042
     Dates: start: 20240521, end: 20240521
  2. LDN [Concomitant]
  3. ATHETIC  GREENS VITAMIN [Concomitant]
  4. VITAMIN D 3,000 [Concomitant]
  5. OMEGA [Concomitant]
  6. MAGNESIUM [Concomitant]

REACTIONS (4)
  - Arthralgia [None]
  - Disability [None]
  - Arthralgia [None]
  - Quality of life decreased [None]

NARRATIVE: CASE EVENT DATE: 20240521
